FAERS Safety Report 9701717 (Version 1)
Quarter: 2013Q4

REPORT INFORMATION
  Report Type: Spontaneous
  Country: US (occurrence: None)
  Receive Date: 20131120
  Receipt Date: 20131120
  Transmission Date: 20140711
  Serious: Yes (Disabling)
  Sender: FDA-Public Use
  Company Number: None

PATIENT
  Age: 33 Year
  Sex: Male
  Weight: 72.58 kg

DRUGS (1)
  1. CIPRO [Suspect]
     Indication: SURGERY
     Dates: start: 20110520, end: 20110521

REACTIONS (12)
  - Gastric disorder [None]
  - Diarrhoea [None]
  - Pain in extremity [None]
  - Pain in extremity [None]
  - Back pain [None]
  - Swelling [None]
  - Tendonitis [None]
  - Fatigue [None]
  - Asthenia [None]
  - Sensation of foreign body [None]
  - Dyspnoea [None]
  - Immune system disorder [None]
